FAERS Safety Report 4742668-6 (Version None)
Quarter: 2005Q3

REPORT INFORMATION
  Report Type: 
  Country: None (occurrence: None)
  Receive Date: 20050811
  Receipt Date: 20040722
  Transmission Date: 20060218
  Serious: Yes (Other)
  Sender: FDA-Public Use
  Company Number: BE-JNJFOC-20040505398

PATIENT
  Age: 73 Year
  Sex: Male

DRUGS (1)
  1. PROPULSID [Suspect]
     Dates: start: 20040127, end: 20040401

REACTIONS (3)
  - DRUG INEFFECTIVE [None]
  - ELECTROCARDIOGRAM QT PROLONGED [None]
  - EXTRASYSTOLES [None]
